FAERS Safety Report 7520056-7 (Version None)
Quarter: 2011Q2

REPORT INFORMATION
  Report Type: 
  Country: None (occurrence: None)
  Receive Date: 20110602
  Receipt Date: 20110526
  Transmission Date: 20111010
  Serious: Yes (Hospitalization, Other)
  Sender: FDA-Public Use
  Company Number: CHPA2011US07328

PATIENT
  Age: 6 Year
  Sex: Male
  Weight: 16.327 kg

DRUGS (1)
  1. TRIAMINIC UNKNOWN [Suspect]
     Indication: NASOPHARYNGITIS
     Dosage: 1 DF, ONCE/SINGLE
     Route: 048
     Dates: start: 20110516, end: 20110516

REACTIONS (2)
  - CYANOSIS [None]
  - CONVULSION [None]
